FAERS Safety Report 8726445 (Version 2)
Quarter: 2013Q1

REPORT INFORMATION
  Report Type: Report from Study
  Country: BR (occurrence: BR)
  Receive Date: 20120816
  Receipt Date: 20130102
  Transmission Date: 20140127
  Serious: Yes (Hospitalization)
  Sender: FDA-Public Use
  Company Number: BR-BRISTOL-MYERS SQUIBB COMPANY-16857138

PATIENT
  Age: 53 Year
  Sex: Female

DRUGS (2)
  1. IPILIMUMAB [Suspect]
     Indication: MALIGNANT MELANOMA
     Dosage: INTER ON 02JUL12,RESTARTED ON 23JUL12:2748MG,STOPPED ON 23JUL12.
     Route: 042
     Dates: start: 20120702, end: 20120723
  2. SOLU-MEDROL [Concomitant]
     Dates: start: 20120806, end: 20120826

REACTIONS (3)
  - Colitis [Recovered/Resolved]
  - Diarrhoea [Recovered/Resolved]
  - Vomiting [Not Recovered/Not Resolved]
